FAERS Safety Report 7949191-6 (Version None)
Quarter: 2011Q4

REPORT INFORMATION
  Report Type: 
  Country: None (occurrence: None)
  Receive Date: 20111129
  Receipt Date: 20111129
  Transmission Date: 20120403
  Serious: No
  Sender: FDA-Public Use
  Company Number: None

PATIENT
  Age: 27 Year
  Sex: Male

DRUGS (1)
  1. ANABOLIC STEROIDS [Suspect]
     Dates: start: 20100701, end: 20100815

REACTIONS (4)
  - LIVER INJURY [None]
  - NIGHT SWEATS [None]
  - DIARRHOEA [None]
  - HEPATITIS CHOLESTATIC [None]
